FAERS Safety Report 11011264 (Version 3)
Quarter: 2016Q2

REPORT INFORMATION
  Report Type: Spontaneous
  Country: US (occurrence: US)
  Receive Date: 20150410
  Receipt Date: 20160518
  Transmission Date: 20160815
  Serious: Yes (Hospitalization, Other)
  Sender: FDA-Public Use
  Company Number: US-GLAXOSMITHKLINE-US2015GSK048408

PATIENT
  Sex: Female

DRUGS (1)
  1. BENLYSTA [Suspect]
     Active Substance: BELIMUMAB
     Indication: SYSTEMIC LUPUS ERYTHEMATOSUS
     Dosage: UNK
     Route: 042
     Dates: start: 20130411

REACTIONS (8)
  - Nervous system disorder [Unknown]
  - Emergency care examination [Unknown]
  - Tinnitus [Not Recovered/Not Resolved]
  - Malaise [Unknown]
  - Bone pain [Unknown]
  - Systemic lupus erythematosus [Unknown]
  - Hospitalisation [Unknown]
  - Impaired driving ability [Unknown]
